FAERS Safety Report 5587579-1 (Version None)
Quarter: 2008Q1

REPORT INFORMATION
  Report Type: 
  Country: None (occurrence: None)
  Receive Date: 20080110
  Receipt Date: 20080104
  Transmission Date: 20080703
  Serious: Yes (Hospitalization)
  Sender: FDA-Public Use
  Company Number: GB-MERCK-0711GBR00092

PATIENT
  Age: 76 Year
  Sex: Male
  Weight: 63 kg

DRUGS (4)
  1. JANUVIA [Suspect]
     Indication: DIABETES MELLITUS
     Route: 048
     Dates: start: 20071002
  2. ATORVASTATIN [Concomitant]
     Indication: DIABETES MELLITUS
     Route: 065
  3. EZETIMIBE [Concomitant]
     Indication: DIABETES MELLITUS
     Route: 048
     Dates: start: 20040729
  4. ASPIRIN [Concomitant]
     Indication: DIABETES MELLITUS
     Route: 065
     Dates: start: 20030529

REACTIONS (1)
  - PANCREATIC CARCINOMA [None]
